FAERS Safety Report 6328720-2 (Version None)
Quarter: 2009Q3

REPORT INFORMATION
  Report Type: 
  Country: None (occurrence: None)
  Receive Date: 20090826
  Receipt Date: 20090825
  Transmission Date: 20100115
  Serious: No
  Sender: FDA-Public Use
  Company Number: US-B.I. PHARMACEUTICALS,INC./RIDGEFIELD-2009-BP-05682BP

PATIENT
  Sex: Female

DRUGS (8)
  1. SPIRIVA [Suspect]
     Indication: CHRONIC OBSTRUCTIVE PULMONARY DISEASE
     Dosage: 18 MCG
     Route: 055
     Dates: start: 20070101
  2. LYRICA [Concomitant]
     Indication: NEUROPATHY PERIPHERAL
     Dosage: 300 MG
     Route: 048
     Dates: start: 20040101
  3. METOPROLOL [Concomitant]
     Indication: HYPERTENSION
     Dates: start: 19850101
  4. UNKNOWN DIURETIC [Concomitant]
     Indication: HYPERTENSION
     Dates: start: 19850101
  5. ZOCOR [Concomitant]
     Indication: BLOOD CHOLESTEROL INCREASED
     Dates: start: 19850101
  6. ASPIRIN [Concomitant]
     Indication: CEREBROVASCULAR ACCIDENT
     Dates: start: 19850101
  7. ASPIRIN [Concomitant]
     Indication: CAROTID ARTERY OCCLUSION
  8. CELEBREX [Concomitant]
     Indication: ARTHRITIS
     Dates: start: 19900101

REACTIONS (1)
  - DYSPNOEA [None]
